FAERS Safety Report 8162710-2 (Version None)
Quarter: 2012Q1

REPORT INFORMATION
  Report Type: 
  Country: None (occurrence: None)
  Receive Date: 20120224
  Receipt Date: 20120215
  Transmission Date: 20120608
  Serious: Yes (Death, Life-Threatening, Hospitalization, Other)
  Sender: FDA-Public Use
  Company Number: ES-ABBOTT-12P-144-0902905-00

PATIENT
  Sex: Male

DRUGS (5)
  1. METHOTREXATE [Concomitant]
     Indication: PSORIATIC ARTHROPATHY
  2. ACETAMINOPHEN [Concomitant]
     Indication: PRODUCT USED FOR UNKNOWN INDICATION
  3. ARAVA [Concomitant]
     Indication: PSORIATIC ARTHROPATHY
     Dates: start: 20110101
  4. ANTIHYPERTENSIVE DRUG [Concomitant]
     Indication: HYPERTENSION
     Route: 048
  5. HUMIRA [Suspect]
     Indication: PSORIATIC ARTHROPATHY
     Dates: start: 20051116, end: 20111210

REACTIONS (13)
  - SEPTIC SHOCK [None]
  - ASPERGILLOSIS [None]
  - FEBRILE NEUTROPENIA [None]
  - PANCYTOPENIA [None]
  - LEUKOPLAKIA ORAL [None]
  - LUNG INFECTION [None]
  - BIOPSY LUNG ABNORMAL [None]
  - MULTI-ORGAN FAILURE [None]
  - COUGH [None]
  - PYREXIA [None]
  - BIOPSY LIVER ABNORMAL [None]
  - CANDIDIASIS [None]
  - DUODENITIS [None]
